FAERS Safety Report 10263511 (Version 1)
Quarter: 2014Q2

REPORT INFORMATION
  Report Type: Spontaneous
  Country: US (occurrence: US)
  Receive Date: 20140626
  Receipt Date: 20140626
  Transmission Date: 20141212
  Serious: Yes (Disabling)
  Sender: FDA-Public Use
  Company Number: US-ACORDA-ACO_104103_2014

PATIENT
  Sex: Female
  Weight: 45.35 kg

DRUGS (4)
  1. AMPYRA [Suspect]
     Indication: GAIT DISTURBANCE
     Dosage: 10 MG, Q 12 HRS
     Route: 048
     Dates: start: 20100612
  2. AMPYRA [Suspect]
     Indication: MULTIPLE SCLEROSIS
  3. GILENYA [Suspect]
     Indication: MULTIPLE SCLEROSIS
     Dosage: 0.5 MG, QD
     Route: 048
  4. GILENYA [Suspect]
     Dosage: 0.5 MG, 3 TIMES PER WEEK
     Route: 048

REACTIONS (3)
  - Wheelchair user [Not Recovered/Not Resolved]
  - Contusion [Recovered/Resolved]
  - White blood cell count decreased [Recovering/Resolving]
